FAERS Safety Report 6747135-6 (Version None)
Quarter: 2010Q2

REPORT INFORMATION
  Report Type: 
  Country: None (occurrence: None)
  Receive Date: 20100528
  Receipt Date: 20100517
  Transmission Date: 20101027
  Serious: No
  Sender: FDA-Public Use
  Company Number: US-B.I. PHARMACEUTICALS,INC./RIDGEFIELD-2010-BP-05683BP

PATIENT
  Sex: Male

DRUGS (7)
  1. SPIRIVA [Suspect]
     Indication: ASTHMA
     Dosage: 18 MCG
     Route: 055
     Dates: start: 20090801
  2. SINGULAIR [Concomitant]
     Indication: ASTHMA
  3. ADVAIR DISKUS 100/50 [Concomitant]
     Indication: ASTHMA
  4. ZYRTEC [Concomitant]
     Indication: ASTHMA
  5. MEDROL [Concomitant]
     Indication: ASTHMA
  6. NEXIUM [Concomitant]
     Indication: ULCER
  7. SUCRELFATE [Concomitant]
     Indication: ULCER

REACTIONS (3)
  - ARTHRALGIA [None]
  - LIVER FUNCTION TEST ABNORMAL [None]
  - MYALGIA [None]
